FAERS Safety Report 20572139 (Version 4)
Quarter: 2022Q2

REPORT INFORMATION
  Report Type: Report from Study
  Country: JP (occurrence: JP)
  Receive Date: 20220309
  Receipt Date: 20220416
  Transmission Date: 20220721
  Serious: Yes (Hospitalization, Other)
  Sender: FDA-Public Use
  Company Number: JP-ONO-2022JP003591

PATIENT
  Age: 70 Year
  Sex: Male
  Weight: 56.8 kg

DRUGS (29)
  1. NIVOLUMAB [Suspect]
     Active Substance: NIVOLUMAB
     Indication: Peripheral T-cell lymphoma unspecified
     Route: 065
  2. NIVOLUMAB [Suspect]
     Active Substance: NIVOLUMAB
     Dosage: 240 MILLIGRAM, Q2WK
     Route: 042
     Dates: start: 20210512
  3. NIVOLUMAB [Suspect]
     Active Substance: NIVOLUMAB
     Dosage: CYCLE 18, DAY 1
     Route: 065
     Dates: start: 20220105
  4. PREDNISOLONE [Suspect]
     Active Substance: PREDNISOLONE
     Indication: Tubulointerstitial nephritis
     Dosage: 30 MILLIGRAM, QD
     Route: 048
     Dates: start: 20210811
  5. PREDNISOLONE [Suspect]
     Active Substance: PREDNISOLONE
     Dosage: UNK
     Route: 048
     Dates: end: 20210906
  6. PREDNISOLONE [Suspect]
     Active Substance: PREDNISOLONE
     Dosage: UNK, EVERYDAY (ADJUSTED FROM 30MG / DAY TO 5MG / DAY)
     Route: 048
     Dates: start: 20210915
  7. PREDNISOLONE [Suspect]
     Active Substance: PREDNISOLONE
     Dosage: 10 MILLIGRAM, QD
     Route: 048
     Dates: end: 20220128
  8. PREDNISOLONE [Suspect]
     Active Substance: PREDNISOLONE
     Dosage: 50 MILLIGRAM, QD
     Route: 048
     Dates: start: 20220129
  9. PREDNISOLONE [Suspect]
     Active Substance: PREDNISOLONE
     Dosage: 15 MILLIGRAM, QD, TABLET
     Route: 048
     Dates: start: 20220301
  10. NIVOLUMAB\RELATLIMAB-RMBW [Suspect]
     Active Substance: NIVOLUMAB\RELATLIMAB-RMBW
     Dosage: CYCLE 18, DAY 1
     Route: 065
     Dates: start: 20220105
  11. AMLODIPINE [Concomitant]
     Active Substance: AMLODIPINE BESYLATE
     Indication: Hypertension
     Dosage: 5 MG, EVERYDAY
     Route: 048
     Dates: end: 20220228
  12. AMLODIPINE [Concomitant]
     Active Substance: AMLODIPINE BESYLATE
     Dosage: 5 MILLIGRAM, QD
     Route: 048
  13. FEBUXOSTAT [Concomitant]
     Active Substance: FEBUXOSTAT
     Indication: Prophylaxis
     Dosage: 20 MG, EVERYDAY
     Route: 048
     Dates: start: 20211014, end: 20220228
  14. FAMOTIDINE [Concomitant]
     Active Substance: FAMOTIDINE
     Indication: Prophylaxis against gastrointestinal ulcer
     Dosage: 10 MG, EVERYDAY
     Route: 048
     Dates: start: 20220113, end: 20220228
  15. URSODIOL [Concomitant]
     Active Substance: URSODIOL
     Indication: Hepatobiliary disorder prophylaxis
     Dosage: 200 MG, Q8H
     Route: 048
     Dates: end: 20220228
  16. URSODIOL [Concomitant]
     Active Substance: URSODIOL
     Dosage: 200 MILLIGRAM, Q8H
     Route: 048
  17. VORICONAZOLE [Concomitant]
     Active Substance: VORICONAZOLE
     Indication: Pneumonia
     Dosage: 200 MG, Q12H
     Route: 048
     Dates: start: 20220122
  18. VORICONAZOLE [Concomitant]
     Active Substance: VORICONAZOLE
     Dosage: 150 MG, Q12H
     Route: 048
     Dates: start: 20220201, end: 20220228
  19. LINZESS [Concomitant]
     Active Substance: LINACLOTIDE
     Indication: Constipation
     Dosage: 0.25 MG, EVERYDAY
     Route: 048
     Dates: start: 20220127, end: 20220228
  20. CUPRIC SULFATE\FERRIC CHLORIDE\MANGANESE CHLORIDE\POTASSIUM IODIDE\ZIN [Concomitant]
     Active Substance: CUPRIC SULFATE\FERRIC CHLORIDE\MANGANESE CHLORIDE\POTASSIUM IODIDE\ZINC SULFATE
     Indication: Decreased appetite
     Dosage: 2 MILLILITER, EVERYDAY
     Route: 042
     Dates: start: 20220204, end: 20220208
  21. HEPARINOID [Concomitant]
     Indication: Pruritus
     Dosage: APPROPRIATE AMOUNT, PRN
     Route: 061
     Dates: start: 20210514
  22. FEXOFENADINE HYDROCHLORIDE [Concomitant]
     Active Substance: FEXOFENADINE HYDROCHLORIDE
     Indication: Prophylaxis
     Dosage: 60 MG, Q12H
     Route: 048
     Dates: end: 20220228
  23. FEXOFENADINE HYDROCHLORIDE [Concomitant]
     Active Substance: FEXOFENADINE HYDROCHLORIDE
     Indication: Product used for unknown indication
     Dosage: 60 MILLIGRAM, Q12H
     Route: 065
  24. TWOTRAM [Concomitant]
     Indication: Cancer pain
     Dosage: 100 MILLIGRAM, Q12H
     Route: 048
     Dates: start: 20220129
  25. DENOSINE [Concomitant]
     Indication: Antiviral prophylaxis
     Dosage: 75 MILLIGRAM, QD
     Route: 041
     Dates: start: 20220204
  26. DIPHENHYDRAMINE [Concomitant]
     Active Substance: DIPHENHYDRAMINE
     Indication: Pruritus
     Dosage: APPROPRIATE AMOUNT
     Route: 061
     Dates: start: 20210514
  27. VITAMEDIN [CYANOCOBALAMIN;PYRIDOXINE HYDROCHLORIDE;THIAMINE HYDROCHLOR [Concomitant]
     Indication: Decreased appetite
     Dosage: 1V, EVERYDAY
     Route: 042
     Dates: start: 20220204
  28. METHYLCOBALAMIN [Concomitant]
     Active Substance: METHYLCOBALAMIN
     Indication: Peripheral sensory neuropathy
     Dosage: 500 MICROGRAM, Q8H
     Route: 065
     Dates: start: 20220219
  29. VALGANCICLOVIR [Concomitant]
     Active Substance: VALGANCICLOVIR
     Indication: Cytomegalovirus infection
     Dosage: 450 MILLIGRAM, QD
     Route: 065
     Dates: start: 20220223

REACTIONS (2)
  - Herpes zoster [Recovered/Resolved]
  - Peritonitis [Not Recovered/Not Resolved]

NARRATIVE: CASE EVENT DATE: 20220206
